FAERS Safety Report 13168393 (Version 2)
Quarter: 2017Q1

REPORT INFORMATION
  Report Type: Spontaneous
  Country: US (occurrence: US)
  Receive Date: 20170131
  Receipt Date: 20170201
  Transmission Date: 20170428
  Serious: No
  Sender: FDA-Public Use
  Company Number: US-BAYER-2017-018990

PATIENT
  Age: 66 Year
  Sex: Female

DRUGS (1)
  1. CLIMARA PRO [Suspect]
     Active Substance: ESTRADIOL\LEVONORGESTREL
     Route: 062

REACTIONS (3)
  - Product packaging quantity issue [None]
  - Product physical issue [None]
  - Product adhesion issue [None]

NARRATIVE: CASE EVENT DATE: 20170109
